FAERS Safety Report 23527918 (Version 2)
Quarter: 2024Q1

REPORT INFORMATION
  Report Type: Spontaneous
  Country: US (occurrence: US)
  Receive Date: 20240215
  Receipt Date: 20240222
  Transmission Date: 20240410
  Serious: No
  Sender: FDA-Public Use
  Company Number: US-JNJFOC-20240222530

PATIENT
  Sex: Female

DRUGS (2)
  1. TYLENOL 8 HR ARTHRITIS PAIN [Suspect]
     Active Substance: ACETAMINOPHEN
     Indication: Pain
     Dosage: TOOK 2 AND AFTER FOUR HOURS THE PAIN CAME BACK AND I HAD TO WAIT ANOTHER 4 HOURS TO TAKE ANOTHER DO
     Route: 065
  2. TYLENOL 8 HR ARTHRITIS PAIN [Suspect]
     Active Substance: ACETAMINOPHEN
     Dosage: TAKING 1 AND THEN 1 AGAIN FOUR HOURS LATER
     Route: 065

REACTIONS (1)
  - Therapeutic product effect incomplete [Unknown]
